FAERS Safety Report 9471308 (Version 1)
Quarter: 2013Q3

REPORT INFORMATION
  Report Type: Spontaneous
  Country: DE (occurrence: DE)
  Receive Date: 20130822
  Receipt Date: 20130822
  Transmission Date: 20140515
  Serious: Yes (Hospitalization)
  Sender: FDA-Public Use
  Company Number: DE-TEVA-427084GER

PATIENT
  Age: 20 Year
  Sex: Female
  Weight: 102 kg

DRUGS (1)
  1. THEOPHYLLINE [Suspect]
     Indication: INTENTIONAL OVERDOSE
     Dosage: 20 GRAM DAILY;
     Route: 048

REACTIONS (5)
  - Poisoning [Recovered/Resolved]
  - Intentional overdose [Recovered/Resolved]
  - Induced abortion failed [Recovered/Resolved]
  - Exposure during pregnancy [Recovered/Resolved]
  - Pregnancy [Unknown]
